FAERS Safety Report 5896477-5 (Version None)
Quarter: 2008Q3

REPORT INFORMATION
  Report Type: 
  Country: None (occurrence: None)
  Receive Date: 20080924
  Receipt Date: 20080919
  Transmission Date: 20090109
  Serious: Yes (Hospitalization)
  Sender: FDA-Public Use
  Company Number: FR-PFIZER INC-2008070291

PATIENT
  Sex: Male

DRUGS (4)
  1. TAHOR [Suspect]
     Route: 048
     Dates: start: 20080630, end: 20080630
  2. MS CONTIN [Suspect]
     Route: 048
     Dates: start: 20080630, end: 20080630
  3. MICARDIS HCT [Suspect]
     Route: 048
     Dates: start: 20080630, end: 20080630
  4. NOVONORM [Suspect]
     Route: 048
     Dates: start: 20080630, end: 20080630

REACTIONS (1)
  - COMA [None]
